FAERS Safety Report 9582769 (Version 1)
Quarter: 2013Q4

REPORT INFORMATION
  Report Type: Spontaneous
  Country: US (occurrence: US)
  Receive Date: 20131002
  Receipt Date: 20131002
  Transmission Date: 20140711
  Serious: No
  Sender: FDA-Public Use
  Company Number: US-AMGEN-USASP2013042957

PATIENT
  Age: 15 Year
  Sex: Female
  Weight: 54.42 kg

DRUGS (4)
  1. ENBREL [Suspect]
     Indication: PRODUCT USED FOR UNKNOWN INDICATION
     Dosage: 50 MG, 2 TIMES/WK
     Route: 058
  2. CLOBETASOL [Concomitant]
     Dosage: 0.05 %, UNK
  3. TRIAMCINOLON                       /00031901/ [Concomitant]
     Dosage: 0.1 %, UNK
  4. PROTOPIC [Concomitant]
     Dosage: 0.1 %, UNK

REACTIONS (3)
  - Injection site bruising [Unknown]
  - Urticaria [Unknown]
  - Rash pruritic [Unknown]
